FAERS Safety Report 20174394 (Version 1)
Quarter: 2021Q4

REPORT INFORMATION
  Report Type: Spontaneous
  Country: US (occurrence: US)
  Receive Date: 20211213
  Receipt Date: 20211213
  Transmission Date: 20220303
  Serious: No
  Sender: FDA-Public Use
  Company Number: US-drreddys-SPO/USA/21/0144585

PATIENT
  Age: 24 Year
  Sex: Female

DRUGS (1)
  1. ACCUTANE [Suspect]
     Active Substance: ISOTRETINOIN
     Indication: Product used for unknown indication
     Dosage: RMA ISSUE DATE:20 AUGUST 2021 4:24:18 PM,22 SEPTEMBER 2021 9:37:21 AM,29 OCTOBER 2021 2:36:56 PM

REACTIONS (1)
  - Adverse drug reaction [Unknown]
